FAERS Safety Report 7056748-6 (Version None)
Quarter: 2010Q4

REPORT INFORMATION
  Report Type: 
  Country: None (occurrence: None)
  Receive Date: 20101022
  Receipt Date: 20101013
  Transmission Date: 20110411
  Serious: Yes (Other)
  Sender: FDA-Public Use
  Company Number: US-BIOGENIDEC-2010BI030444

PATIENT
  Sex: Female

DRUGS (3)
  1. AVONEX [Suspect]
     Indication: PRODUCT USED FOR UNKNOWN INDICATION
     Route: 030
     Dates: start: 20030501, end: 20070101
  2. AVONEX [Suspect]
     Route: 030
     Dates: start: 20070101, end: 20070101
  3. AVONEX [Suspect]
     Route: 030
     Dates: start: 20070101

REACTIONS (4)
  - LYMPHADENOPATHY [None]
  - NON-HODGKIN'S LYMPHOMA [None]
  - SJOGREN'S SYNDROME [None]
  - THYROID CANCER [None]
